FAERS Safety Report 15731678 (Version 1)
Quarter: 2018Q4

REPORT INFORMATION
  Report Type: Other
  Country: GB (occurrence: GB)
  Receive Date: 20181217
  Receipt Date: 20181217
  Transmission Date: 20190205
  Serious: Yes (Life-Threatening, Hospitalization)
  Sender: FDA-Public Use
  Company Number: GB-HERITAGE PHARMACEUTICALS-2018HTG00259

PATIENT

DRUGS (3)
  1. DESMOPRESSIN [Suspect]
     Active Substance: DESMOPRESSIN
     Indication: BLADDER DYSFUNCTION
     Dosage: 1 DOSAGE UNITS
     Route: 045
     Dates: start: 20110512, end: 20170410
  2. COPAXONE [Concomitant]
     Active Substance: GLATIRAMER ACETATE
  3. FLUOXETINE [Suspect]
     Active Substance: FLUOXETINE HYDROCHLORIDE
     Indication: MENOPAUSAL SYMPTOMS
     Dosage: 20 MG
     Route: 048
     Dates: start: 20161111, end: 20170410

REACTIONS (3)
  - Spinal fracture [Unknown]
  - Hyponatraemia [Recovering/Resolving]
  - Hyponatraemic seizure [Recovering/Resolving]

NARRATIVE: CASE EVENT DATE: 20170406
